FAERS Safety Report 12205011 (Version 1)
Quarter: 2016Q1

REPORT INFORMATION
  Report Type: Spontaneous
  Country: US (occurrence: US)
  Receive Date: 20160323
  Receipt Date: 20160323
  Transmission Date: 20160526
  Serious: No
  Sender: FDA-Public Use
  Company Number: US-ELI_LILLY_AND_COMPANY-US201603001347

PATIENT
  Age: 32 Year
  Sex: Female

DRUGS (1)
  1. DULOXETINE HYDROCHLORIDE. [Suspect]
     Active Substance: DULOXETINE HYDROCHLORIDE
     Indication: PAIN
     Dosage: 40 MG, QD
     Route: 065
     Dates: end: 20160222

REACTIONS (3)
  - Drug withdrawal syndrome [Unknown]
  - Drug dose omission [Unknown]
  - Anxiety [Unknown]
